FAERS Safety Report 24602619 (Version 6)
Quarter: 2025Q2

REPORT INFORMATION
  Report Type: Spontaneous
  Country: PL (occurrence: PL)
  Receive Date: 20241111
  Receipt Date: 20250528
  Transmission Date: 20250717
  Serious: Yes (Hospitalization, Other)
  Sender: TAKEDA
  Company Number: PL-LUNDBECK-DKLU4000967

PATIENT
  Age: 31 Year
  Sex: Male

DRUGS (8)
  1. BRINTELLIX [Suspect]
     Active Substance: VORTIOXETINE HYDROBROMIDE
     Indication: Depression
     Dosage: UNK, QD
     Dates: start: 202311
  2. BRINTELLIX [Suspect]
     Active Substance: VORTIOXETINE HYDROBROMIDE
     Indication: Anxiety disorder
  3. BRINTELLIX [Suspect]
     Active Substance: VORTIOXETINE HYDROBROMIDE
  4. BRINTELLIX [Suspect]
     Active Substance: VORTIOXETINE HYDROBROMIDE
  5. BRINTELLIX [Suspect]
     Active Substance: VORTIOXETINE HYDROBROMIDE
  6. ACETAMINOPHEN\ASCORBIC ACID\CODEINE [Suspect]
     Active Substance: ACETAMINOPHEN\ASCORBIC ACID\CODEINE
     Indication: Nasopharyngitis
  7. ACETAMINOPHEN\ASCORBIC ACID\CODEINE [Suspect]
     Active Substance: ACETAMINOPHEN\ASCORBIC ACID\CODEINE
  8. ACETAMINOPHEN\ASCORBIC ACID\CODEINE [Suspect]
     Active Substance: ACETAMINOPHEN\ASCORBIC ACID\CODEINE

REACTIONS (12)
  - Dizziness [Unknown]
  - Epistaxis [Unknown]
  - Eructation [Unknown]
  - Flatulence [Unknown]
  - Abdominal pain [Recovered/Resolved]
  - Pancreatitis acute [Recovered/Resolved]
  - Pancreatic failure [Not Recovered/Not Resolved]
  - Nausea [Unknown]
  - Ileus paralytic [Recovering/Resolving]
  - Impaired gastric emptying [Recovering/Resolving]
  - Gastrointestinal disorder [Recovering/Resolving]
  - Wrong technique in product usage process [Unknown]

NARRATIVE: CASE EVENT DATE: 20240418
